FAERS Safety Report 15426124 (Version 2)
Quarter: 2018Q4

REPORT INFORMATION
  Report Type: Report from Study
  Country: US (occurrence: US)
  Receive Date: 20180925
  Receipt Date: 20181008
  Transmission Date: 20190204
  Serious: Yes (Death, Life-Threatening)
  Sender: FDA-Public Use
  Company Number: US-TEVA-2018-US-957621

PATIENT
  Age: 33 Year
  Sex: Female

DRUGS (1)
  1. CLONAZEPAM. [Suspect]
     Active Substance: CLONAZEPAM
     Route: 065

REACTIONS (3)
  - Toxicity to various agents [Fatal]
  - Coma [Unknown]
  - Depressed level of consciousness [Unknown]
